FAERS Safety Report 5677258-4 (Version None)
Quarter: 2008Q1

REPORT INFORMATION
  Report Type: 
  Country: None (occurrence: None)
  Receive Date: 20080321
  Receipt Date: 20080321
  Transmission Date: 20080703
  Serious: No
  Sender: FDA-Public Use
  Company Number: None

PATIENT
  Sex: Male

DRUGS (1)
  1. BIAXIN [Suspect]
     Dosage: 500MG 1 TABLET BID ORAL   2 DOSES
     Route: 048
     Dates: start: 20080316

REACTIONS (4)
  - DYSPHAGIA [None]
  - PHARYNGOLARYNGEAL PAIN [None]
  - PYREXIA [None]
  - THROAT TIGHTNESS [None]
